FAERS Safety Report 7824921-2 (Version None)
Quarter: 2011Q4

REPORT INFORMATION
  Report Type: 
  Country: None (occurrence: None)
  Receive Date: 20111019
  Receipt Date: 20110818
  Transmission Date: 20120403
  Serious: No
  Sender: FDA-Public Use
  Company Number: US-BRISTOL-MYERS SQUIBB COMPANY-15568850

PATIENT
  Age: 70 Year
  Sex: Female
  Weight: 99 kg

DRUGS (9)
  1. OMEPRAZOLE [Concomitant]
  2. AVALIDE [Suspect]
     Dates: start: 19940101
  3. FEMARA [Concomitant]
  4. SYNTHROID [Concomitant]
  5. AMITIZA [Concomitant]
  6. ASPIRIN [Concomitant]
  7. MULTI-VITAMIN [Concomitant]
  8. CRESTOR [Concomitant]
  9. LASIX [Concomitant]

REACTIONS (2)
  - HEART RATE INCREASED [None]
  - HYPERTENSION [None]
